FAERS Safety Report 7180237-1 (Version None)
Quarter: 2010Q4

REPORT INFORMATION
  Report Type: 
  Country: None (occurrence: None)
  Receive Date: 20101221
  Receipt Date: 20101210
  Transmission Date: 20110411
  Serious: Yes (Hospitalization)
  Sender: FDA-Public Use
  Company Number: PHHO2010US18303

PATIENT
  Sex: Male
  Weight: 75.6 kg

DRUGS (3)
  1. AFINITOR [Suspect]
     Indication: PROSTATE CANCER
     Dosage: 2.5 MG, DAILY
     Route: 048
     Dates: start: 20101006, end: 20101123
  2. DOCETAXEL [Suspect]
     Indication: PROSTATE CANCER
     Dosage: 75 MG/M2
     Route: 042
     Dates: start: 20101006, end: 20101117
  3. AVASTIN [Suspect]
     Indication: PROSTATE CANCER
     Dosage: 15 MG/KG
     Route: 042
     Dates: start: 20101006, end: 20101117

REACTIONS (8)
  - ACUTE CORONARY SYNDROME [None]
  - CHEST PAIN [None]
  - ELECTROCARDIOGRAM ABNORMAL [None]
  - ELECTROCARDIOGRAM T WAVE INVERSION [None]
  - FEBRILE NEUTROPENIA [None]
  - SINUS TACHYCARDIA [None]
  - SYNCOPE [None]
  - WHITE BLOOD CELL COUNT DECREASED [None]
